FAERS Safety Report 18451437 (Version 2)
Quarter: 2021Q4

REPORT INFORMATION
  Report Type: Spontaneous
  Country: US (occurrence: US)
  Receive Date: 20201101
  Receipt Date: 20211227
  Transmission Date: 20220304
  Serious: Yes (Other)
  Sender: FDA-Public Use
  Company Number: US-NAPPMUNDI-USA-2020-0153845

PATIENT

DRUGS (2)
  1. OXYCONTIN [Suspect]
     Active Substance: OXYCODONE HYDROCHLORIDE
     Indication: Pain management
     Dosage: 3 X 5 MG, DAILY
     Route: 048
     Dates: start: 199612
  2. OXYCONTIN [Suspect]
     Active Substance: OXYCODONE HYDROCHLORIDE
     Dosage: 2 X10 UNK, UNK
     Route: 048
     Dates: start: 199612

REACTIONS (8)
  - Drug dependence [Unknown]
  - Depression [Unknown]
  - Emotional distress [Unknown]
  - Sexual dysfunction [Unknown]
  - Catastrophic reaction [Unknown]
  - Injury [Unknown]
  - Impaired work ability [Unknown]
  - Anxiety [Unknown]
